FAERS Safety Report 21865710 (Version 3)
Quarter: 2023Q1

REPORT INFORMATION
  Report Type: Report from Study
  Country: US (occurrence: US)
  Receive Date: 20230116
  Receipt Date: 20230320
  Transmission Date: 20230418
  Serious: Yes (Other)
  Sender: FDA-Public Use
  Company Number: US-SA-SAC20230112000406

PATIENT
  Age: 54 Year
  Sex: Male

DRUGS (1)
  1. ALEMTUZUMAB [Suspect]
     Active Substance: ALEMTUZUMAB
     Indication: Relapsing multiple sclerosis
     Dosage: UNK
     Route: 041
     Dates: start: 20190520, end: 20211027

REACTIONS (3)
  - Hyperthyroidism [Unknown]
  - Blood thyroid stimulating hormone decreased [Unknown]
  - Basedow^s disease [Unknown]
